FAERS Safety Report 9387391 (Version 1)
Quarter: 2013Q3

REPORT INFORMATION
  Report Type: Spontaneous
  Country: US (occurrence: US)
  Receive Date: 20130708
  Receipt Date: 20130708
  Transmission Date: 20140515
  Serious: No
  Sender: FDA-Public Use
  Company Number: US-GLAXOSMITHKLINE-A1023720A

PATIENT
  Age: 26 Year
  Sex: Female

DRUGS (2)
  1. POTIGA [Suspect]
     Indication: CONVULSION
     Dosage: 400MG TWICE PER DAY
     Route: 048
     Dates: start: 20130221, end: 20130422
  2. ANTI-EPILEPTIC DRUGS [Concomitant]

REACTIONS (3)
  - Chromaturia [Recovered/Resolved]
  - Skin discolouration [Unknown]
  - Drug ineffective [Unknown]
